FAERS Safety Report 26170563 (Version 1)
Quarter: 2025Q4

REPORT INFORMATION
  Report Type: Spontaneous
  Country: US (occurrence: US)
  Receive Date: 20251217
  Receipt Date: 20251217
  Transmission Date: 20260117
  Serious: No
  Sender: LUNDBECK
  Company Number: US-LUNDBECK-DKLU4022244

PATIENT
  Age: 18 Year
  Sex: Female
  Weight: 76.8 kg

DRUGS (1)
  1. VYEPTI [Suspect]
     Active Substance: EPTINEZUMAB-JJMR
     Indication: Product used for unknown indication
     Dosage: EVERY 90 DAYS
     Route: 041

REACTIONS (8)
  - Nasopharyngitis [Recovering/Resolving]
  - Gastroenteritis viral [Recovering/Resolving]
  - Dizziness [Recovering/Resolving]
  - Nausea [Recovering/Resolving]
  - Cold sweat [Recovering/Resolving]
  - Pyrexia [Recovering/Resolving]
  - Pallor [Recovering/Resolving]
  - Asthenia [Recovering/Resolving]

NARRATIVE: CASE EVENT DATE: 20251101
